FAERS Safety Report 7639158-X (Version None)
Quarter: 2011Q3

REPORT INFORMATION
  Report Type: 
  Country: None (occurrence: None)
  Receive Date: 20110727
  Receipt Date: 20110719
  Transmission Date: 20111222
  Serious: Yes (Hospitalization)
  Sender: FDA-Public Use
  Company Number: US-AMGEN-USASP2011036689

PATIENT
  Sex: Female

DRUGS (2)
  1. ENBREL [Suspect]
     Indication: RHEUMATOID ARTHRITIS
     Dosage: UNK
     Dates: start: 20030101, end: 20100701
  2. METHOTREXATE [Concomitant]

REACTIONS (10)
  - NECK PAIN [None]
  - VOMITING [None]
  - SHOULDER ARTHROPLASTY [None]
  - INTERVERTEBRAL DISC PROTRUSION [None]
  - ARTHRALGIA [None]
  - OEDEMA PERIPHERAL [None]
  - NAUSEA [None]
  - BURNING SENSATION [None]
  - ARTHRITIS INFECTIVE [None]
  - GAIT DISTURBANCE [None]
